FAERS Safety Report 14679000 (Version 1)
Quarter: 2018Q1

REPORT INFORMATION
  Report Type: Spontaneous
  Country: JP (occurrence: JP)
  Receive Date: 20180326
  Receipt Date: 20180326
  Transmission Date: 20180509
  Serious: Yes (Death, Hospitalization, Other)
  Sender: FDA-Public Use
  Company Number: JP-009507513-1803JPN002262J

PATIENT
  Age: 88 Year
  Sex: Male

DRUGS (1)
  1. KEYTRUDA [Suspect]
     Active Substance: PEMBROLIZUMAB
     Indication: NON-SMALL CELL LUNG CANCER
     Dosage: 200 MG, Q3W
     Route: 041
     Dates: start: 20171107

REACTIONS (2)
  - Encephalitis [Recovering/Resolving]
  - Choking [Fatal]

NARRATIVE: CASE EVENT DATE: 201801
